FAERS Safety Report 13780548 (Version 1)
Quarter: 2017Q3

REPORT INFORMATION
  Report Type: Other
  Country: DE (occurrence: DE)
  Receive Date: 20170724
  Receipt Date: 20170724
  Transmission Date: 20171127
  Serious: Yes (Hospitalization)
  Sender: FDA-Public Use
  Company Number: DE-ORCHID HEALTHCARE-2023661

PATIENT
  Age: 19 Year
  Sex: Female

DRUGS (1)
  1. VENLAFAXINE HYDROCHLORIDE. [Suspect]
     Active Substance: VENLAFAXINE HYDROCHLORIDE
     Indication: SUICIDE ATTEMPT
     Route: 065

REACTIONS (15)
  - Renal failure [Recovered/Resolved]
  - Disseminated intravascular coagulation [Recovered/Resolved]
  - Hypothermia [Recovered/Resolved]
  - Generalised tonic-clonic seizure [Recovered/Resolved]
  - Cardiac arrest [Recovered/Resolved]
  - Low cardiac output syndrome [Recovered/Resolved]
  - Ventricular tachycardia [Recovered/Resolved]
  - Abnormal clotting factor [Recovered/Resolved]
  - Hepatic function abnormal [Recovered/Resolved]
  - Suicide attempt [Recovered/Resolved]
  - Gastrointestinal haemorrhage [Recovered/Resolved]
  - Lactic acidosis [Recovered/Resolved]
  - Cardiogenic shock [Recovered/Resolved]
  - Stress cardiomyopathy [Recovered/Resolved]
  - Multiple organ dysfunction syndrome [Recovered/Resolved]
